FAERS Safety Report 18930801 (Version 1)
Quarter: 2021Q1

REPORT INFORMATION
  Report Type: Spontaneous
  Country: US (occurrence: US)
  Receive Date: 20210224
  Receipt Date: 20210224
  Transmission Date: 20210420
  Serious: No
  Sender: FDA-Public Use
  Company Number: US-BIOCODEX SA-2021000028

PATIENT
  Sex: Male
  Weight: 47.17 kg

DRUGS (8)
  1. IBUPROFEN. [Concomitant]
     Active Substance: IBUPROFEN
  2. CLOBAZAM. [Concomitant]
     Active Substance: CLOBAZAM
  3. DIACOMIT [Suspect]
     Active Substance: STIRIPENTOL
     Indication: EPILEPSY
     Dosage: 1000 MG, BID
     Route: 065
     Dates: start: 20200127
  4. PHENOBARBITAL. [Concomitant]
     Active Substance: PHENOBARBITAL
  5. TOPIRAMATE. [Concomitant]
     Active Substance: TOPIRAMATE
  6. ONFI [Concomitant]
     Active Substance: CLOBAZAM
  7. MIDAZOLAM HCL [Concomitant]
     Active Substance: MIDAZOLAM HYDROCHLORIDE
  8. MIRALAX [Concomitant]
     Active Substance: POLYETHYLENE GLYCOL 3350

REACTIONS (2)
  - Product use in unapproved indication [Unknown]
  - Malaise [Unknown]
